FAERS Safety Report 11417426 (Version 2)
Quarter: 2015Q3

REPORT INFORMATION
  Report Type: Spontaneous
  Country: US (occurrence: US)
  Receive Date: 20150825
  Receipt Date: 20150911
  Transmission Date: 20151125
  Serious: Yes (Other)
  Sender: FDA-Public Use
  Company Number: US-BAYER-2015-406774

PATIENT
  Age: 71 Year
  Sex: Female

DRUGS (2)
  1. BETASERON [Suspect]
     Active Substance: INTERFERON BETA-1B
     Indication: MULTIPLE SCLEROSIS
     Dosage: UNK
     Dates: start: 2010
  2. BETASERON [Suspect]
     Active Substance: INTERFERON BETA-1B
     Indication: MULTIPLE SCLEROSIS
     Dosage: 0.25 MG, QOD
     Route: 058
     Dates: start: 201402

REACTIONS (8)
  - Myasthenia gravis [None]
  - Erythema [None]
  - Lymphoedema [Not Recovered/Not Resolved]
  - Hypotension [None]
  - Carpal tunnel decompression [None]
  - Arthritis [None]
  - Joint swelling [None]
  - Eye disorder [None]

NARRATIVE: CASE EVENT DATE: 2012
